FAERS Safety Report 6073098-5 (Version None)
Quarter: 2009Q1

REPORT INFORMATION
  Report Type: 
  Country: None (occurrence: None)
  Receive Date: 20090205
  Receipt Date: 20090129
  Transmission Date: 20090719
  Serious: Yes (Other)
  Sender: FDA-Public Use
  Company Number: POMP-1000479

PATIENT
  Age: 4 Year
  Sex: Male
  Weight: 19.7 kg

DRUGS (5)
  1. MYOZYME [Suspect]
     Indication: GLYCOGEN STORAGE DISEASE TYPE II
     Dosage: 20 MG/KG, Q2W, INTRAVENOUS
     Route: 042
     Dates: start: 20050328
  2. MYOZYME [Suspect]
  3. CARNITINE (CARNITINE) [Concomitant]
  4. FLUTICASONE PROPIONATE [Concomitant]
  5. SALBUTAMOL (SALBUTAMOL) [Concomitant]

REACTIONS (7)
  - BLADDER DISTENSION [None]
  - BLADDER SPASM [None]
  - CONSTIPATION [None]
  - DYSURIA [None]
  - MASS [None]
  - PNEUMONIA [None]
  - URINARY INCONTINENCE [None]
